FAERS Safety Report 18642100 (Version 2)
Quarter: 2021Q1

REPORT INFORMATION
  Report Type: Report from Study
  Country: None (occurrence: NL)
  Receive Date: 20201221
  Receipt Date: 20210104
  Transmission Date: 20210419
  Serious: Yes (Hospitalization)
  Sender: FDA-Public Use
  Company Number: NL-ABBVIE-18S-114-2480279-00

PATIENT
  Age: 71 Year
  Sex: Female

DRUGS (15)
  1. CLOZAPINE. [Concomitant]
     Active Substance: CLOZAPINE
     Indication: HALLUCINATION
  2. GABAPENTIN. [Concomitant]
     Active Substance: GABAPENTIN
     Dates: start: 20200616
  3. RIVASTIGMINE. [Concomitant]
     Active Substance: RIVASTIGMINE
     Indication: PRODUCT USED FOR UNKNOWN INDICATION
     Route: 065
  4. DUODOPA [Suspect]
     Active Substance: CARBIDOPA\LEVODOPA
     Dosage: MD 7.5ML CD DAY: 5.4 ED 3.0 (IT WAS 2.8) CD NIGHT: 4.0
     Route: 050
  5. MACROGOL [Concomitant]
     Active Substance: POLYETHYLENE GLYCOLS
     Indication: ABNORMAL FAECES
  6. DUODOPA [Suspect]
     Active Substance: CARBIDOPA\LEVODOPA
     Indication: PARKINSON^S DISEASE
     Dosage: MD 7,0 ML CDD 3,4 ML/U EDD 2,8 ML CDN 1,7 ML/U EDN 2,8 ML
     Route: 050
     Dates: start: 20180910, end: 2018
  7. ENTACAPONE. [Concomitant]
     Active Substance: ENTACAPONE
     Indication: PRODUCT USED FOR UNKNOWN INDICATION
     Route: 065
  8. RIVASTIGMINE. [Concomitant]
     Active Substance: RIVASTIGMINE
     Dosage: DOSAGE HAD HALVED
     Route: 065
  9. DUODOPA [Suspect]
     Active Substance: CARBIDOPA\LEVODOPA
     Dosage: DAY PUMP WITH PEG?J MD?7.5ML, CD?4.9ML/HR, ED?2.8ML?NIGHT PUMP PEGJ CD?2.9ML/HR, ED?2.8ML
     Route: 050
     Dates: start: 2018, end: 2018
  10. DUODOPA [Suspect]
     Active Substance: CARBIDOPA\LEVODOPA
     Dosage: MD 7.5, CD 5.4, ED 2.8, NIGHT DOSE 3.6, NIGHT ED 2.8
     Route: 050
     Dates: start: 2018
  11. RIVASTIGMINE. [Concomitant]
     Active Substance: RIVASTIGMINE
     Route: 065
  12. MOVICOLON [Concomitant]
     Active Substance: POLYETHYLENE GLYCOL 3350\POTASSIUM CHLORIDE\SODIUM BICARBONATE\SODIUM CHLORIDE
     Indication: ABNORMAL FAECES
  13. DUODOPA [Suspect]
     Active Substance: CARBIDOPA\LEVODOPA
     Dosage: MD 7.5 CD 5.8 ED 3.0 ND 4.0 EDN 2.8
     Route: 050
  14. GABAPENTIN. [Concomitant]
     Active Substance: GABAPENTIN
     Indication: PAIN IN EXTREMITY
     Dates: start: 20200616
  15. QUETIAPINE. [Concomitant]
     Active Substance: QUETIAPINE
     Indication: HALLUCINATION
     Dates: start: 20200616

REACTIONS (68)
  - Product use issue [Not Recovered/Not Resolved]
  - Logorrhoea [Not Recovered/Not Resolved]
  - Incontinence [Not Recovered/Not Resolved]
  - Reduced facial expression [Not Recovered/Not Resolved]
  - Vision blurred [Not Recovered/Not Resolved]
  - Hypotension [Unknown]
  - Confusional state [Recovered/Resolved]
  - Hallucination [Recovered/Resolved]
  - Loss of personal independence in daily activities [Not Recovered/Not Resolved]
  - Back pain [Not Recovered/Not Resolved]
  - Fear [Recovered/Resolved]
  - Dizziness [Not Recovered/Not Resolved]
  - Device issue [Unknown]
  - General physical health deterioration [Not Recovered/Not Resolved]
  - Delusion [Unknown]
  - Abdominal pain [Not Recovered/Not Resolved]
  - Cognitive disorder [Not Recovered/Not Resolved]
  - Extra dose administered [Recovered/Resolved]
  - Stress [Recovered/Resolved]
  - Stoma site discharge [Recovered/Resolved]
  - Fear [Unknown]
  - Hallucination [Recovered/Resolved]
  - Feeling abnormal [Not Recovered/Not Resolved]
  - Memory impairment [Not Recovered/Not Resolved]
  - Underdose [Recovered/Resolved]
  - Muscle spasms [Not Recovered/Not Resolved]
  - Confusional state [Recovered/Resolved]
  - Hyperkinesia [Unknown]
  - Stoma site erythema [Recovered/Resolved]
  - Stoma site extravasation [Recovered/Resolved]
  - Therapeutic product effect incomplete [Not Recovered/Not Resolved]
  - Musculoskeletal stiffness [Not Recovered/Not Resolved]
  - Nocturia [Not Recovered/Not Resolved]
  - Urinary tract infection [Not Recovered/Not Resolved]
  - Depressed mood [Not Recovered/Not Resolved]
  - Pain [Not Recovered/Not Resolved]
  - Stoma site discharge [Not Recovered/Not Resolved]
  - Stoma site odour [Not Recovered/Not Resolved]
  - Drug ineffective [Not Recovered/Not Resolved]
  - Therapeutic product effect decreased [Recovered/Resolved]
  - Pain in extremity [Not Recovered/Not Resolved]
  - Dysstasia [Not Recovered/Not Resolved]
  - Hallucination [Recovered/Resolved]
  - Overdose [Recovered/Resolved]
  - On and off phenomenon [Not Recovered/Not Resolved]
  - Stoma site erythema [Not Recovered/Not Resolved]
  - Stoma site irritation [Unknown]
  - Stoma site discharge [Recovered/Resolved]
  - Cystitis [Recovered/Resolved]
  - Emotional disorder [Not Recovered/Not Resolved]
  - Therapeutic product effect variable [Not Recovered/Not Resolved]
  - Confusional state [Unknown]
  - Medication error [Not Recovered/Not Resolved]
  - Anger [Not Recovered/Not Resolved]
  - Malaise [Not Recovered/Not Resolved]
  - Fibroma [Recovered/Resolved]
  - Unevaluable event [Unknown]
  - Medical device site scab [Recovered/Resolved]
  - Medical device site injury [Not Recovered/Not Resolved]
  - Fear of falling [Not Recovered/Not Resolved]
  - Gait disturbance [Not Recovered/Not Resolved]
  - Abnormal dreams [Recovered/Resolved]
  - Weight increased [Not Recovered/Not Resolved]
  - Weight decreased [Recovered/Resolved]
  - Fall [Recovered/Resolved]
  - Fluid intake reduced [Not Recovered/Not Resolved]
  - Dyskinesia [Not Recovered/Not Resolved]
  - Freezing phenomenon [Not Recovered/Not Resolved]

NARRATIVE: CASE EVENT DATE: 2018
